FAERS Safety Report 26043007 (Version 1)
Quarter: 2025Q4

REPORT INFORMATION
  Report Type: Spontaneous
  Country: PR (occurrence: PR)
  Receive Date: 20251113
  Receipt Date: 20251113
  Transmission Date: 20260118
  Serious: No
  Sender: ANI
  Company Number: PR-ANIPHARMA-2025-PR-000094

PATIENT
  Age: 36 Year
  Sex: Female
  Weight: 102.06 kg

DRUGS (7)
  1. CORTICOTROPIN [Suspect]
     Active Substance: CORTICOTROPIN
     Indication: Product used for unknown indication
     Dosage: 80 U DAILY FOR 15 DAYS
     Route: 058
     Dates: start: 20250905, end: 20250920
  2. FLEXERIL [Concomitant]
     Active Substance: CYCLOBENZAPRINE HYDROCHLORIDE
  3. BACLOFEN [Concomitant]
     Active Substance: BACLOFEN
  4. GABAPENTIN [Concomitant]
     Active Substance: GABAPENTIN
  5. TRAZODONE [Concomitant]
     Active Substance: TRAZODONE HYDROCHLORIDE
  6. LUNESTA [Concomitant]
     Active Substance: ESZOPICLONE
  7. CLONAZEPAM [Concomitant]
     Active Substance: CLONAZEPAM
     Dosage: 1 AND 2 MG DAILY

REACTIONS (4)
  - Abnormal weight gain [Unknown]
  - Contusion [Unknown]
  - Skin discolouration [Unknown]
  - Disorientation [Recovered/Resolved]

NARRATIVE: CASE EVENT DATE: 20250901
